FAERS Safety Report 17104862 (Version 1)
Quarter: 2019Q4

REPORT INFORMATION
  Report Type: Report from Study
  Country: EG (occurrence: EG)
  Receive Date: 20191203
  Receipt Date: 20191203
  Transmission Date: 20200122
  Serious: Yes (Other)
  Sender: FDA-Public Use
  Company Number: EG-ROCHE-2481640

PATIENT
  Sex: Female

DRUGS (1)
  1. TECENTRIQ [Suspect]
     Active Substance: ATEZOLIZUMAB
     Indication: LUNG NEOPLASM MALIGNANT
     Dosage: 21 DAY
     Route: 042
     Dates: start: 20190608

REACTIONS (3)
  - Drug ineffective [Unknown]
  - Disease progression [Not Recovered/Not Resolved]
  - Ill-defined disorder [Not Recovered/Not Resolved]
